FAERS Safety Report 8089262-X (Version None)
Quarter: 2012Q1

REPORT INFORMATION
  Report Type: 
  Country: None (occurrence: None)
  Receive Date: 20120128
  Receipt Date: 20110706
  Transmission Date: 20120608
  Serious: No
  Sender: FDA-Public Use
  Company Number: US-ABBOTT-11P-163-0837697-00

PATIENT
  Sex: Female
  Weight: 81.72 kg

DRUGS (2)
  1. HUMIRA [Suspect]
     Indication: RHEUMATOID ARTHRITIS
     Route: 058
     Dates: start: 20110201, end: 20110413
  2. HUMIRA [Suspect]
     Dates: start: 20110413

REACTIONS (3)
  - DIARRHOEA [None]
  - ORAL HERPES [None]
  - FAECES DISCOLOURED [None]
